FAERS Safety Report 22231615 (Version 1)
Quarter: 2023Q2

REPORT INFORMATION
  Report Type: Spontaneous
  Country: CA (occurrence: CA)
  Receive Date: 20230420
  Receipt Date: 20230420
  Transmission Date: 20230721
  Serious: Yes (Hospitalization)
  Sender: FDA-Public Use
  Company Number: CA-AUROBINDO-AUR-APL-2023-031315

PATIENT
  Age: 53 Year
  Sex: Female

DRUGS (3)
  1. CEFIXIME [Suspect]
     Active Substance: CEFIXIME
     Indication: Pelvic abscess
     Dosage: 400 MILLIGRAM, ONCE A DAY
     Route: 048
  2. CEFTRIAXONE [Suspect]
     Active Substance: CEFTRIAXONE
     Indication: Pelvic abscess
     Dosage: 2 GRAM, ONCE A DAY
     Route: 042
  3. CIPROFLOXACIN [Concomitant]
     Active Substance: CIPROFLOXACIN
     Indication: Product used for unknown indication
     Dosage: UNK
     Route: 065

REACTIONS (1)
  - Clostridium test positive [Unknown]
